FAERS Safety Report 5249933-7 (Version None)
Quarter: 2007Q1

REPORT INFORMATION
  Report Type: 
  Country: None (occurrence: None)
  Receive Date: 20070228
  Receipt Date: 20060105
  Transmission Date: 20070707
  Serious: No
  Sender: FDA-Public Use
  Company Number: US-GLAXOSMITHKLINE-A0587947A

PATIENT
  Age: 45 Year
  Sex: Male

DRUGS (1)
  1. LAMICTAL [Suspect]
     Indication: BIPOLAR DISORDER
     Dosage: 300MG PER DAY
     Route: 048
     Dates: start: 20030101

REACTIONS (3)
  - ALCOHOL INTOLERANCE [None]
  - DEPRESSION [None]
  - IRRITABILITY [None]
